FAERS Safety Report 4414254-9 (Version None)
Quarter: 2004Q3

REPORT INFORMATION
  Report Type: 
  Country: None (occurrence: None)
  Receive Date: 20040729
  Receipt Date: 20040722
  Transmission Date: 20050211
  Serious: Yes (Death, Hospitalization)
  Sender: FDA-Public Use
  Company Number: 200410020BNE

PATIENT
  Age: 90 Year
  Sex: Female
  Weight: 82 kg

DRUGS (6)
  1. ASPIRIN [Suspect]
     Dosage: 75 MG, TOTAL DAILY, ORAL
     Route: 048
  2. FLUOXETINE [Suspect]
     Dosage: 20 MG, TOTAL DAILY, ORAL
     Route: 048
  3. MELOXICAM [Suspect]
     Dosage: 30 MG, TOTAL DAILY, ORAL
     Route: 048
     Dates: end: 20040105
  4. PREDNISOLONE [Suspect]
     Dosage: ORAL
     Route: 048
  5. BURINEX [Suspect]
     Dosage: QD, ORAL
     Route: 048
  6. ENALAPRIL MALEATE [Suspect]
     Dosage: 20 MG, TOTAL DAILY, ORAL
     Route: 048

REACTIONS (1)
  - MELAENA [None]
